FAERS Safety Report 5955709-5 (Version None)
Quarter: 2008Q4

REPORT INFORMATION
  Report Type: 
  Country: None (occurrence: None)
  Receive Date: 20081117
  Receipt Date: 20081106
  Transmission Date: 20090506
  Serious: Yes (Other)
  Sender: FDA-Public Use
  Company Number: US-PFIZER INC-2008042307

PATIENT
  Sex: Male
  Weight: 71.2 kg

DRUGS (10)
  1. LYRICA [Suspect]
     Indication: CONVULSION
     Route: 048
     Dates: start: 20051019, end: 20060401
  2. LYRICA [Suspect]
     Indication: EPILEPSY
  3. DILANTIN [Suspect]
  4. ZONEGRAN [Concomitant]
  5. KEPPRA [Concomitant]
     Dates: start: 20030401
  6. LAMICTAL [Concomitant]
     Dates: start: 20030401
  7. CLONAZEPAM [Concomitant]
     Dates: start: 20030401, end: 20070801
  8. LEXAPRO [Concomitant]
     Dates: start: 20040801, end: 20070901
  9. PROVIGIL [Concomitant]
     Dates: start: 20051201, end: 20060601
  10. GABITRIL [Concomitant]
     Dates: start: 20060301, end: 20070301

REACTIONS (9)
  - AGGRESSION [None]
  - AGITATION [None]
  - ANOREXIA [None]
  - DRUG HYPERSENSITIVITY [None]
  - FEAR [None]
  - INSOMNIA [None]
  - PARANOIA [None]
  - PERSECUTORY DELUSION [None]
  - PSYCHOTIC DISORDER [None]
